FAERS Safety Report 8075910-7 (Version None)
Quarter: 2012Q1

REPORT INFORMATION
  Report Type: 
  Country: None (occurrence: None)
  Receive Date: 20120127
  Receipt Date: 20120117
  Transmission Date: 20120608
  Serious: Yes (Other)
  Sender: FDA-Public Use
  Company Number: DE-EISAI INC-E7389-01781-SPO-DE

PATIENT
  Sex: Female
  Weight: 60 kg

DRUGS (5)
  1. HALAVEN [Suspect]
     Indication: BREAST CANCER
     Route: 041
     Dates: start: 20110909, end: 20111103
  2. NEULASTA [Concomitant]
     Indication: NEUTROPENIA
     Route: 042
  3. HALAVEN [Suspect]
     Indication: METASTASES TO LIVER
  4. KEVATRIL [Concomitant]
     Route: 042
  5. DEXAMETHASONE [Concomitant]
     Route: 042

REACTIONS (2)
  - PALMAR-PLANTAR ERYTHRODYSAESTHESIA SYNDROME [None]
  - NEURALGIA [None]
